FAERS Safety Report 10678841 (Version 1)
Quarter: 2014Q4

REPORT INFORMATION
  Report Type: Spontaneous
  Country: US (occurrence: US)
  Receive Date: 20141229
  Receipt Date: 20141229
  Transmission Date: 20150529
  Serious: No
  Sender: FDA-Public Use
  Company Number: US-PFIZER INC-2014356600

PATIENT
  Sex: Male

DRUGS (2)
  1. LYRICA [Suspect]
     Active Substance: PREGABALIN
     Indication: FIBROMYALGIA
     Dosage: 75 MG, 2X/DAY
     Dates: end: 2014
  2. LYRICA [Suspect]
     Active Substance: PREGABALIN
     Dosage: 75 MG, 3X/DAY
     Dates: start: 2014

REACTIONS (6)
  - Blister [Unknown]
  - Genital contusion [Unknown]
  - Malaise [Unknown]
  - Pain [Unknown]
  - Periorbital contusion [Unknown]
  - Contusion [Unknown]

NARRATIVE: CASE EVENT DATE: 201412
